FAERS Safety Report 9459793 (Version 2)
Quarter: 2014Q3

REPORT INFORMATION
  Report Type: Spontaneous
  Country: BE (occurrence: BE)
  Receive Date: 20130815
  Receipt Date: 20140702
  Transmission Date: 20150326
  Serious: Yes (Life-Threatening, Hospitalization)
  Sender: FDA-Public Use
  Company Number: BE-ASTRAZENECA-2013SE62963

PATIENT
  Age: 65 Year
  Sex: Male

DRUGS (5)
  1. TACROLIMUS. [Interacting]
     Active Substance: TACROLIMUS
  2. SOTALOL. [Interacting]
     Active Substance: SOTALOL
     Indication: ATRIAL FIBRILLATION
  3. ESCITALOPRAM [Interacting]
     Active Substance: ESCITALOPRAM OXALATE
     Indication: DEPRESSION
  4. OMEPRAZOLE. [Suspect]
     Active Substance: OMEPRAZOLE
  5. BISOPROLOL [Concomitant]
     Active Substance: BISOPROLOL

REACTIONS (6)
  - Loss of consciousness [Recovered/Resolved]
  - Long QT syndrome [Recovered/Resolved]
  - Labelled drug-drug interaction medication error [Recovered/Resolved]
  - Vomiting [Unknown]
  - Torsade de pointes [Recovered/Resolved]
  - Apnoea [Recovered/Resolved]
